FAERS Safety Report 9620808 (Version 2)
Quarter: 2013Q4

REPORT INFORMATION
  Report Type: Spontaneous
  Country: JP (occurrence: JP)
  Receive Date: 20131015
  Receipt Date: 20131209
  Transmission Date: 20140711
  Serious: Yes (Hospitalization, Other)
  Sender: FDA-Public Use
  Company Number: JP-ROCHE-1286690

PATIENT
  Age: 83 Year
  Sex: Female
  Weight: 29 kg

DRUGS (4)
  1. ACTEMRA [Suspect]
     Indication: RHEUMATOID ARTHRITIS
     Route: 041
     Dates: start: 20110324
  2. METHOTREXATE [Concomitant]
     Indication: RHEUMATOID ARTHRITIS
     Route: 065
  3. PREDNISOLONE [Concomitant]
     Dosage: DRUG REPORTED AS : PREDONINE
     Route: 065
  4. LOXONIN [Concomitant]
     Dosage: DOSAGE IS UNCERTAIN.
     Route: 065

REACTIONS (4)
  - Fall [Unknown]
  - Femoral neck fracture [Unknown]
  - Haemorrhagic diathesis [Recovered/Resolved]
  - Platelet count decreased [Unknown]
